FAERS Safety Report 6309710-2 (Version None)
Quarter: 2009Q3

REPORT INFORMATION
  Report Type: 
  Country: None (occurrence: None)
  Receive Date: 20090814
  Receipt Date: 20090804
  Transmission Date: 20100115
  Serious: Yes (Other)
  Sender: FDA-Public Use
  Company Number: PHHY2009CA33149

PATIENT
  Sex: Male

DRUGS (1)
  1. DIOVAN HCT [Suspect]
     Dosage: 1 DF, QD
     Route: 048

REACTIONS (3)
  - DIZZINESS [None]
  - EUPHORIC MOOD [None]
  - THINKING ABNORMAL [None]
